FAERS Safety Report 6796116-5 (Version None)
Quarter: 2010Q2

REPORT INFORMATION
  Report Type: 
  Country: None (occurrence: None)
  Receive Date: 20100625
  Receipt Date: 20100617
  Transmission Date: 20101027
  Serious: Yes (Other)
  Sender: FDA-Public Use
  Company Number: JP-ROCHE-711391

PATIENT
  Sex: Male

DRUGS (10)
  1. CAPECITABINE [Suspect]
     Indication: COLON CANCER
     Route: 048
     Dates: start: 20090620, end: 20090703
  2. CAPECITABINE [Suspect]
     Route: 048
     Dates: start: 20090710, end: 20090723
  3. CAPECITABINE [Suspect]
     Route: 048
     Dates: start: 20090731, end: 20090813
  4. CAPECITABINE [Suspect]
     Route: 048
     Dates: start: 20090821, end: 20090903
  5. CAPECITABINE [Suspect]
     Route: 048
     Dates: start: 20090911, end: 20090924
  6. CAPECITABINE [Suspect]
     Route: 048
     Dates: start: 20091002, end: 20091007
  7. CAPECITABINE [Suspect]
     Route: 048
     Dates: start: 20091023, end: 20091030
  8. CAPECITABINE [Suspect]
     Route: 048
     Dates: start: 20091113, end: 20091126
  9. CAPECITABINE [Suspect]
     Route: 048
     Dates: start: 20091204, end: 20091217
  10. PYDOXAL [Concomitant]
     Dosage: DRUG: PYDOXAL TAB (PYRIDOXAL PHOSPHATE)
     Dates: start: 20090620, end: 20091225

REACTIONS (3)
  - CHOLELITHIASIS [None]
  - HEPATIC FUNCTION ABNORMAL [None]
  - PALMAR-PLANTAR ERYTHRODYSAESTHESIA SYNDROME [None]
